FAERS Safety Report 26097697 (Version 2)
Quarter: 2025Q4

REPORT INFORMATION
  Report Type: Report from Study
  Country: IN (occurrence: IN)
  Receive Date: 20251127
  Receipt Date: 20251221
  Transmission Date: 20260117
  Serious: Yes (Hospitalization, Other)
  Sender: ROCHE
  Company Number: IN-ROCHE-10000446006

PATIENT
  Age: 56 Year
  Sex: Male
  Weight: 95 kg

DRUGS (7)
  1. TECENTRIQ [Suspect]
     Active Substance: ATEZOLIZUMAB
     Indication: Hepatocellular carcinoma
  2. FEXUCLUE [Concomitant]
  3. RIFAXIMIN [Concomitant]
     Active Substance: RIFAXIMIN
  4. CARDIVAS [AMLODIPINE BESILATE] [Concomitant]
  5. ALCOMAX [Concomitant]
     Active Substance: ALCOHOL
  6. ORNITHINE ASPARTATE [Concomitant]
     Active Substance: ORNITHINE ASPARTATE
  7. SHELCAL M [Concomitant]

REACTIONS (9)
  - Blood sodium decreased [Recovered/Resolved]
  - Arthralgia [Not Recovered/Not Resolved]
  - Muscle spasms [Not Recovered/Not Resolved]
  - Pain [Not Recovered/Not Resolved]
  - Ageusia [Not Recovered/Not Resolved]
  - Diarrhoea [Not Recovered/Not Resolved]
  - Shoulder operation [Recovered/Resolved]
  - Blood potassium decreased [Recovered/Resolved]
  - Loss of consciousness [Unknown]

NARRATIVE: CASE EVENT DATE: 20170101
